FAERS Safety Report 8367806-8 (Version None)
Quarter: 2012Q2

REPORT INFORMATION
  Report Type: 
  Country: None (occurrence: None)
  Receive Date: 20120517
  Receipt Date: 20120509
  Transmission Date: 20120825
  Serious: Yes (Other)
  Sender: FDA-Public Use
  Company Number: US-BAYER-2012-045851

PATIENT
  Sex: Female

DRUGS (3)
  1. LOVENOX [Concomitant]
     Indication: THROMBOSIS
  2. BEYAZ [Suspect]
     Dosage: UNK
     Dates: start: 20120207, end: 20120101
  3. COUMADIN [Concomitant]
     Indication: THROMBOSIS

REACTIONS (1)
  - THROMBOSIS [None]
